FAERS Safety Report 6134805-6 (Version None)
Quarter: 2009Q1

REPORT INFORMATION
  Report Type: 
  Country: None (occurrence: None)
  Receive Date: 20090327
  Receipt Date: 20090317
  Transmission Date: 20090719
  Serious: Yes (Other)
  Sender: FDA-Public Use
  Company Number: US-PFIZER INC-2009185120

PATIENT
  Sex: Female
  Weight: 68.027 kg

DRUGS (7)
  1. PROVERA [Suspect]
     Indication: HORMONE REPLACEMENT THERAPY
     Dosage: 2.5 MG, UNK
     Route: 065
     Dates: start: 19941101, end: 19970901
  2. PREMARIN [Suspect]
     Indication: HORMONE REPLACEMENT THERAPY
     Dosage: 0.625 MG, UNK
     Route: 065
     Dates: start: 19941101, end: 19970901
  3. PREMPRO [Suspect]
     Indication: HORMONE REPLACEMENT THERAPY
     Dosage: UNK, 0.625/2.65 MG
     Route: 065
     Dates: start: 19970901, end: 19990501
  4. RELAFEN [Concomitant]
     Indication: FIBROMYALGIA
     Dosage: UNK
     Route: 065
     Dates: start: 19950701, end: 19991101
  5. RELAFEN [Concomitant]
     Indication: HEADACHE
  6. AMITRIPTYLINE [Concomitant]
     Indication: HEADACHE
     Dosage: UNK
     Route: 065
     Dates: start: 19950701
  7. AMITRIPTYLINE [Concomitant]
     Indication: PAIN

REACTIONS (1)
  - BREAST CANCER FEMALE [None]
